FAERS Safety Report 4574528-8 (Version None)
Quarter: 2005Q1

REPORT INFORMATION
  Report Type: 
  Country: None (occurrence: None)
  Receive Date: 20050208
  Receipt Date: 20030923
  Transmission Date: 20050727
  Serious: No
  Sender: FDA-Public Use
  Company Number: US-GLAXOSMITHKLINE-A0428565A

PATIENT
  Age: 28 Year
  Sex: Female

DRUGS (5)
  1. PAXIL [Suspect]
     Indication: POSTPARTUM DEPRESSION
     Route: 048
     Dates: start: 20000815
  2. GLUCOPHAGE [Concomitant]
     Indication: INSULIN RESISTANCE
  3. SYNTHROID [Concomitant]
     Indication: HYPOTHYROIDISM
  4. NASONEX [Concomitant]
  5. ALLEGRA [Concomitant]

REACTIONS (4)
  - DEPENDENCE [None]
  - DRUG WITHDRAWAL SYNDROME [None]
  - RASH [None]
  - TINNITUS [None]
